FAERS Safety Report 20290555 (Version 1)
Quarter: 2022Q1

REPORT INFORMATION
  Report Type: Spontaneous
  Country: US (occurrence: US)
  Receive Date: 20220104
  Receipt Date: 20220104
  Transmission Date: 20220423
  Serious: No
  Sender: FDA-Public Use
  Company Number: US-JNJFOC-20211259755

PATIENT
  Age: 8 Decade
  Sex: Female

DRUGS (3)
  1. PEPCID AC [Suspect]
     Active Substance: FAMOTIDINE
     Indication: Gastric disorder
     Dosage: PRODUCT START DATE: MAYBE IT WAS 25 DAYS AGO WHEN SHE STOPPED USING THE BAD BOX
     Route: 065
     Dates: start: 2021
  2. PEPCID AC [Suspect]
     Active Substance: FAMOTIDINE
     Indication: Gastritis
  3. PEPCID AC [Suspect]
     Active Substance: FAMOTIDINE
     Indication: Gastrooesophageal reflux disease

REACTIONS (2)
  - Burning sensation [Recovered/Resolved]
  - Product use in unapproved indication [Unknown]

NARRATIVE: CASE EVENT DATE: 20210101
